FAERS Safety Report 8880550 (Version 1)
Quarter: 2012Q4

REPORT INFORMATION
  Report Type: 
  Country: CA (occurrence: CA)
  Receive Date: 20121031
  Receipt Date: 20121031
  Transmission Date: 20130627
  Serious: Yes (Hospitalization)
  Sender: FDA-Public Use
  Company Number: CA-AMGEN-CANSP2012030739

PATIENT
  Age: 76 Year
  Sex: Female
  Weight: 55.9 kg

DRUGS (6)
  1. PROLIA [Suspect]
     Indication: OSTEOPOROSIS
     Dosage: 60 mg, q6mo
     Route: 058
     Dates: start: 20110401
  2. VENTOLIN                           /00139501/ [Concomitant]
     Indication: ASTHMA
     Dosage: UNK
     Route: 048
  3. TYLENOL /00020001/ [Concomitant]
     Indication: OSTEOARTHRITIS
     Dosage: UNK
  4. CELEBREX [Concomitant]
     Indication: HYPERTENSION
     Dosage: UNK
  5. AVAPRO [Concomitant]
     Indication: HYPERTENSION
     Dosage: UNK
  6. NORVASC [Concomitant]
     Indication: HYPERTENSION
     Dosage: UNK

REACTIONS (2)
  - Acute myocardial infarction [Recovered/Resolved]
  - Myalgia [Unknown]
